FAERS Safety Report 9250018 (Version 3)
Quarter: 2014Q2

REPORT INFORMATION
  Report Type: Spontaneous
  Country: US (occurrence: US)
  Receive Date: 20130424
  Receipt Date: 20140514
  Transmission Date: 20141212
  Serious: Yes (Hospitalization, Other)
  Sender: FDA-Public Use
  Company Number: US-ASTRAZENECA-2013SE27299

PATIENT
  Age: 65 Year
  Sex: Female
  Weight: 99.8 kg

DRUGS (15)
  1. NEXIUM [Suspect]
     Indication: GASTROOESOPHAGEAL REFLUX DISEASE
     Route: 048
  2. NEXIUM [Suspect]
     Indication: GASTROOESOPHAGEAL REFLUX DISEASE
     Route: 048
  3. NEXIUM [Suspect]
     Indication: GASTROOESOPHAGEAL REFLUX DISEASE
     Route: 048
     Dates: start: 20060519
  4. NEXIUM [Suspect]
     Indication: GASTROOESOPHAGEAL REFLUX DISEASE
     Route: 048
     Dates: start: 20110509
  5. ZANTAC [Concomitant]
     Indication: GASTROOESOPHAGEAL REFLUX DISEASE
  6. TUMS/ CALCIUM [Concomitant]
     Indication: GASTROOESOPHAGEAL REFLUX DISEASE
     Dosage: AS  NEEDED
  7. PREMARIN [Concomitant]
     Indication: HORMONE THERAPY
     Dates: start: 20120411
  8. METRAPROLOL [Concomitant]
     Indication: HYPERTENSION
     Route: 048
     Dates: start: 20121010
  9. LEVOTHYROXINE [Concomitant]
     Indication: THYROID DISORDER
     Dates: start: 20091005
  10. VITAMIN D [Concomitant]
  11. CIMETIDINE [Concomitant]
     Dates: start: 20061002
  12. SINGULAIR [Concomitant]
     Route: 048
     Dates: start: 20100105
  13. CALCITROL [Concomitant]
     Route: 048
     Dates: start: 20101215
  14. ALPRAZOLAM [Concomitant]
     Route: 048
     Dates: start: 20091005
  15. ACIPHEX [Concomitant]
     Route: 048
     Dates: start: 20091104

REACTIONS (16)
  - Asthma [Unknown]
  - Anxiety [Unknown]
  - Blood disorder [Unknown]
  - Cerebrovascular accident [Unknown]
  - Foot fracture [Unknown]
  - Fall [Unknown]
  - Nerve injury [Unknown]
  - Pneumonia [Unknown]
  - Renal disorder [Unknown]
  - Transient ischaemic attack [Unknown]
  - Osteoporosis [Unknown]
  - Bone disorder [Unknown]
  - Multiple fractures [Unknown]
  - Osteopenia [Unknown]
  - Calcium deficiency [Unknown]
  - Depression [Unknown]
